FAERS Safety Report 4806710-6 (Version None)
Quarter: 2005Q4

REPORT INFORMATION
  Report Type: 
  Country: None (occurrence: None)
  Receive Date: 20051019
  Receipt Date: 20050928
  Transmission Date: 20060501
  Serious: Yes (Other)
  Sender: FDA-Public Use
  Company Number: US_0510122885

PATIENT
  Age: 90 Year
  Sex: Female
  Weight: 58 kg

DRUGS (5)
  1. FORTEO [Suspect]
     Indication: OSTEOPOROSIS
     Dosage: 20 UG
  2. TELMISARTAN [Concomitant]
  3. ASPIRIN [Concomitant]
  4. DICYCLOVERINE [Concomitant]
  5. ALUMINIUM + MAGNESIUM HYDROXIDE/SIMETHICONE [Concomitant]

REACTIONS (5)
  - AMNESIA [None]
  - BRAIN OEDEMA [None]
  - INCOHERENT [None]
  - PHARMACEUTICAL PRODUCT COMPLAINT [None]
  - SPEECH DISORDER [None]
